FAERS Safety Report 5005859-5 (Version None)
Quarter: 2006Q2

REPORT INFORMATION
  Report Type: 
  Country: None (occurrence: None)
  Receive Date: 20060517
  Receipt Date: 20060517
  Transmission Date: 20061013
  Serious: Yes (Other)
  Sender: FDA-Public Use
  Company Number: None

PATIENT
  Sex: Female
  Weight: 77.1115 kg

DRUGS (2)
  1. REMICADE [Suspect]
     Indication: RHEUMATOID ARTHRITIS
     Dosage: SEE IMAGE
     Dates: start: 20010901, end: 20031001
  2. METHOTREXATE [Suspect]
     Indication: RHEUMATOID ARTHRITIS
     Dosage: 12.5 MG
     Route: 048
     Dates: start: 20000501

REACTIONS (10)
  - BRONCHIOLOALVEOLAR CARCINOMA [None]
  - COLON CANCER [None]
  - COMPUTERISED TOMOGRAM THORAX ABNORMAL [None]
  - DYSPNOEA [None]
  - LUNG INFILTRATION [None]
  - NIGHT SWEATS [None]
  - OPPORTUNISTIC INFECTION [None]
  - PYREXIA [None]
  - TUBERCULOSIS [None]
  - UNEVALUABLE EVENT [None]
